FAERS Safety Report 8760747 (Version 1)
Quarter: 2012Q4

REPORT INFORMATION
  Report Type: 
  Country: US (occurrence: US)
  Receive Date: 20120830
  Receipt Date: 20120830
  Transmission Date: 20130627
  Serious: No
  Sender: FDA-Public Use
  Company Number: US-TEVA-356162USA

PATIENT
  Sex: Male
  Weight: 68.1 kg

DRUGS (2)
  1. PROAIR HFA [Suspect]
     Indication: CHRONIC OBSTRUCTIVE PULMONARY DISEASE
     Dosage: 1-3 times daily
     Dates: start: 201203
  2. ATENOLOL [Concomitant]
     Indication: HYPERTENSION
     Dosage: 25 Milligram Daily; 12.5 mg
     Route: 048

REACTIONS (2)
  - Sinus congestion [Not Recovered/Not Resolved]
  - Dizziness [Not Recovered/Not Resolved]
